FAERS Safety Report 19189068 (Version 2)
Quarter: 2021Q3

REPORT INFORMATION
  Report Type: Report from Study
  Country: None (occurrence: CR)
  Receive Date: 20210428
  Receipt Date: 20210928
  Transmission Date: 20211014
  Serious: Yes (Hospitalization, Other)
  Sender: FDA-Public Use
  Company Number: CR-ABBVIE-21K-039-3872763-00

PATIENT
  Sex: Female
  Weight: 56 kg

DRUGS (1)
  1. HUMIRA [Suspect]
     Active Substance: ADALIMUMAB
     Indication: PSORIATIC ARTHROPATHY
     Route: 058
     Dates: start: 20090429

REACTIONS (8)
  - Pain [Recovered/Resolved]
  - Cyst [Recovered/Resolved]
  - Renal cyst [Recovered/Resolved]
  - Wound [Recovered/Resolved]
  - Weight decreased [Recovering/Resolving]
  - Deformity [Recovering/Resolving]
  - Kidney infection [Recovered/Resolved]
  - Bacterial infection [Recovered/Resolved]

NARRATIVE: CASE EVENT DATE: 2018
